FAERS Safety Report 8765150 (Version 1)
Quarter: 2012Q4

REPORT INFORMATION
  Report Type: 
  Country: CH (occurrence: CH)
  Receive Date: 20120903
  Receipt Date: 20120903
  Transmission Date: 20130627
  Serious: Yes (Hospitalization)
  Sender: FDA-Public Use
  Company Number: CH-009507513-1208CHE011758

PATIENT

DRUGS (6)
  1. JANUVIA [Suspect]
     Indication: TYPE 2 DIABETES MELLITUS
     Dosage: UNK
     Route: 048
     Dates: end: 20120520
  2. TOREM [Suspect]
     Indication: ESSENTIAL HYPERTENSION
     Dosage: 10 mg, bid
     Route: 048
     Dates: start: 2008, end: 20120520
  3. MARCUMAR [Suspect]
     Dosage: UNK, prn
     Route: 048
     Dates: end: 20120520
  4. TRIATEC (RAMIPRIL) [Concomitant]
     Indication: ESSENTIAL HYPERTENSION
     Dosage: 5 mg, qd
     Route: 048
     Dates: start: 2008, end: 20120521
  5. ALDACTONE TABLETS [Concomitant]
     Dosage: 1 DF, qd
     Route: 048
  6. GLUCOPHAGE [Concomitant]
     Dosage: UNK
     Route: 048
     Dates: end: 20120520

REACTIONS (2)
  - Pancreatitis acute [Recovering/Resolving]
  - International normalised ratio increased [Recovering/Resolving]
